FAERS Safety Report 4786541-6 (Version None)
Quarter: 2005Q3

REPORT INFORMATION
  Report Type: 
  Country: None (occurrence: None)
  Receive Date: 20050927
  Receipt Date: 20050711
  Transmission Date: 20060218
  Serious: No
  Sender: FDA-Public Use
  Company Number: USA0507102389

PATIENT
  Age: 43 Year
  Sex: Male

DRUGS (2)
  1. STRATTERA [Suspect]
     Indication: ATTENTION DEFICIT/HYPERACTIVITY DISORDER
     Dosage: 60 MG DAY
     Dates: start: 20040901
  2. PROTONIX [Concomitant]

REACTIONS (7)
  - DRUG EFFECT DECREASED [None]
  - EJACULATION DISORDER [None]
  - IMPULSIVE BEHAVIOUR [None]
  - IRRITABILITY [None]
  - MENTAL DISORDER [None]
  - TESTICULAR PAIN [None]
  - URINARY RETENTION [None]
